FAERS Safety Report 10202494 (Version 1)
Quarter: 2014Q2

REPORT INFORMATION
  Report Type: Report from Study
  Country: CA (occurrence: CA)
  Receive Date: 20140528
  Receipt Date: 20140528
  Transmission Date: 20141212
  Serious: Yes (Other)
  Sender: FDA-Public Use
  Company Number: CA-BRISTOL-MYERS SQUIBB COMPANY-20810867

PATIENT
  Age: 63 Year
  Sex: Female

DRUGS (12)
  1. ORENCIA FOR INJ [Suspect]
     Indication: RHEUMATOID ARTHRITIS
     Dosage: INTERRUPTED ON:15MAY14
     Route: 042
     Dates: start: 20080606
  2. METHOTREXATE [Concomitant]
  3. CELEBREX [Concomitant]
  4. PAXIL [Concomitant]
  5. TRIAZID [Concomitant]
  6. FOLIC ACID [Concomitant]
  7. DESYREL [Concomitant]
  8. ASPIRIN [Concomitant]
  9. CALCIUM [Concomitant]
  10. VITAMIN D [Concomitant]
  11. TYLENOL NO 1 [Concomitant]
  12. ACTONEL [Concomitant]

REACTIONS (7)
  - Weight decreased [Unknown]
  - Dizziness [Unknown]
  - Fatigue [Unknown]
  - Hypotension [Unknown]
  - Heart rate increased [Unknown]
  - Asthenia [Unknown]
  - Balance disorder [Unknown]
